FAERS Safety Report 5155196-3 (Version None)
Quarter: 2006Q4

REPORT INFORMATION
  Report Type: 
  Country: None (occurrence: None)
  Receive Date: 20061121
  Receipt Date: 20060411
  Transmission Date: 20070319
  Serious: Yes (Other)
  Sender: FDA-Public Use
  Company Number: FRWYE554513APR06

PATIENT
  Sex: Female
  Weight: 77 kg

DRUGS (1)
  1. ENBREL [Suspect]
     Indication: ANKYLOSING SPONDYLITIS
     Dosage: 50 MG TOTAL WEEKLY
     Route: 058
     Dates: start: 20041213

REACTIONS (2)
  - PSEUDOLYMPHOMA [None]
  - VENOMOUS STING [None]
